FAERS Safety Report 8886172 (Version 1)
Quarter: 2012Q4

REPORT INFORMATION
  Report Type: 
  Country: CA (occurrence: CA)
  Receive Date: 20121105
  Receipt Date: 20121105
  Transmission Date: 20130627
  Serious: Yes (Life-Threatening, Hospitalization, Disabling)
  Sender: FDA-Public Use
  Company Number: CA-ASTRAZENECA-2012SE82903

PATIENT
  Age: 66 Year
  Sex: Male
  Weight: 70 kg

DRUGS (5)
  1. NEXIUM [Suspect]
     Route: 048
  2. PANTOLOC [Suspect]
     Route: 048
  3. ASA [Concomitant]
     Route: 048
  4. BISOPROLOL [Concomitant]
  5. COVERSYL [Concomitant]

REACTIONS (4)
  - Blood creatine phosphokinase increased [Recovered/Resolved]
  - Hypocalcaemia [Recovered/Resolved]
  - Hypokalaemia [Recovered/Resolved]
  - Hypomagnesaemia [Recovered/Resolved]
